FAERS Safety Report 15307893 (Version 1)
Quarter: 2018Q3

REPORT INFORMATION
  Report Type: Spontaneous
  Country: US (occurrence: US)
  Receive Date: 20180822
  Receipt Date: 20180822
  Transmission Date: 20181010
  Serious: No
  Sender: FDA-Public Use
  Company Number: US-BECTON DICKINSON-2018BDN00210

PATIENT
  Sex: Female

DRUGS (1)
  1. CHLORAPREP [Suspect]
     Active Substance: CHLORHEXIDINE GLUCONATE\ISOPROPYL ALCOHOL
     Dosage: UNK, ONCE
     Route: 061
     Dates: start: 2014, end: 2014

REACTIONS (3)
  - Occupational exposure to product [Unknown]
  - Blister [Unknown]
  - Eczema [Unknown]

NARRATIVE: CASE EVENT DATE: 2014
